FAERS Safety Report 9898032 (Version 3)
Quarter: 2014Q1

REPORT INFORMATION
  Report Type: Report from Study
  Country: CA (occurrence: CA)
  Receive Date: 20140214
  Receipt Date: 20140317
  Transmission Date: 20141002
  Serious: Yes (Hospitalization)
  Sender: FDA-Public Use
  Company Number: CA-ABBVIE-14P-028-1200779-00

PATIENT
  Sex: Female
  Weight: 62.2 kg

DRUGS (1)
  1. HUMIRA [Suspect]
     Indication: PSORIASIS
     Route: 058
     Dates: start: 20130130

REACTIONS (4)
  - Crohn^s disease [Not Recovered/Not Resolved]
  - Local swelling [Unknown]
  - Local swelling [Unknown]
  - Drug ineffective [Unknown]
